FAERS Safety Report 8452724-7 (Version None)
Quarter: 2012Q2

REPORT INFORMATION
  Report Type: 
  Country: None (occurrence: None)
  Receive Date: 20120620
  Receipt Date: 20120611
  Transmission Date: 20120825
  Serious: Yes (Hospitalization)
  Sender: FDA-Public Use
  Company Number: FR-ASTRAZENECA-2012SE39276

PATIENT
  Age: 6499 Day
  Sex: Male

DRUGS (4)
  1. AMIKACIN [Concomitant]
     Indication: NOCARDIOSIS
     Route: 055
     Dates: start: 20120214
  2. MEROPENEM [Suspect]
     Indication: NOCARDIOSIS
     Route: 041
     Dates: start: 20120329, end: 20120420
  3. BACTRIM DS [Concomitant]
     Indication: NOCARDIOSIS
     Dosage: THREE TIMES A WEEK
     Route: 048
     Dates: start: 20110117, end: 20120214
  4. BACTRIM DS [Concomitant]
     Route: 048
     Dates: start: 20120214

REACTIONS (2)
  - INFUSION SITE RASH [None]
  - AGRANULOCYTOSIS [None]
